FAERS Safety Report 16365126 (Version 23)
Quarter: 2021Q1

REPORT INFORMATION
  Report Type: Spontaneous
  Country: CA (occurrence: CA)
  Receive Date: 20190529
  Receipt Date: 20210325
  Transmission Date: 20210419
  Serious: Yes (Other)
  Sender: FDA-Public Use
  Company Number: CA-CELLTRION INC.-2019CA021466

PATIENT

DRUGS (25)
  1. INFLECTRA [Suspect]
     Active Substance: INFLIXIMAB-DYYB
     Dosage: 10 MG/KG, EVERY 4 WEEKS
     Route: 042
     Dates: start: 20201223
  2. INFLECTRA [Suspect]
     Active Substance: INFLIXIMAB-DYYB
     Indication: CROHN^S DISEASE
     Dosage: 350 MG, (ROUND UP DOSE) ON 0, 2, 6 WEEKS, THEN EVERY 8 WEEKS
     Route: 042
     Dates: start: 20190207, end: 20190516
  3. INFLECTRA [Suspect]
     Active Substance: INFLIXIMAB-DYYB
     Dosage: 400 MG EVERY 0, 2, 6 THEN EVERY 6 WEEKS
     Route: 042
     Dates: start: 20190906, end: 20200806
  4. INFLECTRA [Suspect]
     Active Substance: INFLIXIMAB-DYYB
     Dosage: 400 MG, Q 0, 2, 6 THEN EVERY 6 WEEKS
     Route: 042
     Dates: start: 20200227
  5. INFLECTRA [Suspect]
     Active Substance: INFLIXIMAB-DYYB
     Dosage: 400 MG, Q 0, 2, 6 THEN EVERY 6 WEEKS
     Route: 042
     Dates: start: 20200525
  6. INFLECTRA [Suspect]
     Active Substance: INFLIXIMAB-DYYB
     Dosage: 400 MG, Q 0, 2, 6 THEN EVERY 6 WEEKS
     Route: 042
     Dates: start: 20200525
  7. INFLECTRA [Suspect]
     Active Substance: INFLIXIMAB-DYYB
     Dosage: 400 MG, Q 0, 2, 6 THEN EVERY 6 WEEKS
     Route: 042
     Dates: start: 20200806
  8. INFLECTRA [Suspect]
     Active Substance: INFLIXIMAB-DYYB
     Dosage: 10 MG/KG, EVERY 4 WEEKS
     Route: 042
     Dates: start: 20210121
  9. INFLECTRA [Suspect]
     Active Substance: INFLIXIMAB-DYYB
     Dosage: 350 MG, (ROUND UP DOSE) ON 0, 2, 6 WEEKS, THEN EVERY 8 WEEKS
     Route: 042
     Dates: start: 20190516
  10. INFLECTRA [Suspect]
     Active Substance: INFLIXIMAB-DYYB
     Dosage: 400 MG, Q 0, 2, 6 THEN EVERY 6 WEEKS
     Route: 042
     Dates: start: 20200113
  11. INFLECTRA [Suspect]
     Active Substance: INFLIXIMAB-DYYB
     Dosage: 400 MG, Q 0, 2, 6 THEN EVERY 6 WEEKS
     Route: 042
     Dates: start: 20200409
  12. INFLECTRA [Suspect]
     Active Substance: INFLIXIMAB-DYYB
     Dosage: 400 MG, Q 0, 2, 6 THEN EVERY 6 WEEKS
     Route: 042
     Dates: start: 20200709
  13. INFLECTRA [Suspect]
     Active Substance: INFLIXIMAB-DYYB
     Dosage: 10 MG/KG, (700 MG) EVERY 6 WEEKS
     Route: 042
     Dates: start: 20200916, end: 20200916
  14. INFLECTRA [Suspect]
     Active Substance: INFLIXIMAB-DYYB
     Dosage: 10 MG/KG, EVERY 4 WEEKS
     Route: 042
     Dates: start: 20201123
  15. PREDNISONE. [Concomitant]
     Active Substance: PREDNISONE
     Dosage: 1 DF
     Route: 065
  16. INFLECTRA [Suspect]
     Active Substance: INFLIXIMAB-DYYB
     Dosage: 10 MG/KG, EVERY 4 WEEKS
     Route: 042
     Dates: start: 20210216
  17. INFLECTRA [Suspect]
     Active Substance: INFLIXIMAB-DYYB
     Dosage: 700 MG (SUPPOSED TO RECEIVE 10 MG/KG EVERY 4 WEEKS )
     Route: 042
     Dates: start: 20210315
  18. PREDNISONE. [Concomitant]
     Active Substance: PREDNISONE
     Dosage: UNK
     Dates: start: 201910, end: 201910
  19. FLAGYL [Concomitant]
     Active Substance: METRONIDAZOLE\METRONIDAZOLE HYDROCHLORIDE
     Dosage: UNK
  20. INFLECTRA [Suspect]
     Active Substance: INFLIXIMAB-DYYB
     Dosage: 10 MG/KG, EVERY 4 WEEKS
     Route: 042
     Dates: start: 20201026
  21. INFLECTRA [Suspect]
     Active Substance: INFLIXIMAB-DYYB
     Dosage: 350 MG, (ROUND UP DOSE) ON 0, 2, 6 WEEKS, THEN EVERY 8 WEEKS
     Route: 042
     Dates: start: 20190321
  22. INFLECTRA [Suspect]
     Active Substance: INFLIXIMAB-DYYB
     Dosage: 400 MG EVERY 0, 2, 6 THEN EVERY 6 WEEKS
     Route: 042
     Dates: start: 20190917
  23. INFLECTRA [Suspect]
     Active Substance: INFLIXIMAB-DYYB
     Dosage: 400 MG EVERY 0, 2, 6 THEN EVERY 6 WEEKS
     Route: 042
     Dates: start: 20191017
  24. CIPRO [Concomitant]
     Active Substance: CIPROFLOXACIN HYDROCHLORIDE
     Dosage: UNK
  25. IMURAN [Concomitant]
     Active Substance: AZATHIOPRINE
     Dosage: 1 DF
     Route: 065

REACTIONS (21)
  - Therapeutic response shortened [Unknown]
  - Infection [Unknown]
  - Dehydration [Unknown]
  - Unresponsive to stimuli [Recovered/Resolved]
  - Heart rate decreased [Unknown]
  - Weight decreased [Recovering/Resolving]
  - Condition aggravated [Unknown]
  - Pallor [Unknown]
  - Crohn^s disease [Unknown]
  - Hypotension [Unknown]
  - Product use issue [Unknown]
  - Fatigue [Unknown]
  - Weight increased [Unknown]
  - Feeling abnormal [Unknown]
  - Inappropriate schedule of product administration [Unknown]
  - Loss of consciousness [Recovered/Resolved]
  - Rectal abscess [Unknown]
  - Syncope [Recovered/Resolved]
  - Off label use [Unknown]
  - Intentional product use issue [Unknown]
  - Contraindicated product administered [Unknown]

NARRATIVE: CASE EVENT DATE: 2019
